FAERS Safety Report 6718591-4 (Version None)
Quarter: 2010Q2

REPORT INFORMATION
  Report Type: 
  Country: None (occurrence: None)
  Receive Date: 20100503
  Receipt Date: 20100420
  Transmission Date: 20101027
  Serious: Yes (Death, Hospitalization)
  Sender: FDA-Public Use
  Company Number: 2009AC000047

PATIENT
  Age: 76 Year
  Sex: Female
  Weight: 46.7205 kg

DRUGS (61)
  1. DIGOXIN [Suspect]
     Dosage: 0.125 MG; QD; PO
     Route: 048
     Dates: start: 19960301, end: 20080201
  2. DIGOXIN [Suspect]
     Indication: HYPERTENSIVE HEART DISEASE
     Dosage: .125 MG; QD; PO
     Route: 048
     Dates: start: 19960301, end: 19991201
  3. DIGOXIN [Suspect]
     Indication: ATRIAL FIBRILLATION
     Dosage: .125 MG; QD; PO
     Route: 048
     Dates: start: 20000501, end: 20050101
  4. DIGOXIN [Suspect]
     Dosage: .125 MG; BIW; PO
     Route: 048
     Dates: start: 20051001, end: 20080201
  5. FUROSEMIDE [Concomitant]
  6. MECLIZINE [Concomitant]
  7. ALPRAZOLAM [Concomitant]
  8. XALATAN [Concomitant]
  9. TIMOLOL MALEATE [Concomitant]
  10. ALLOPURINOL [Concomitant]
  11. ATACAND HCT [Concomitant]
  12. VITAPLEX [Concomitant]
  13. DILTIAZEM HCL [Concomitant]
  14. RENAX [Concomitant]
  15. AVANDIA [Concomitant]
  16. VITAMIN D [Concomitant]
  17. AMOXICILLIN [Concomitant]
  18. RENAGEL [Concomitant]
  19. ACTOS [Concomitant]
  20. ARANESP [Concomitant]
  21. IRON [Concomitant]
  22. LASIX [Concomitant]
  23. LIPITOR [Concomitant]
  24. QUINIDINE HCL [Concomitant]
  25. VITAMIN D2 [Concomitant]
  26. TIMOLOL MALEATE OPHTHALMIC [Concomitant]
  27. ..................... [Concomitant]
  28. RENAX [Concomitant]
  29. VITAMIN D [Concomitant]
  30. IRON [Concomitant]
  31. LIPITOR [Concomitant]
  32. DILTIAZEM HCL [Concomitant]
  33. FUROSEMIDE [Concomitant]
  34. ......... [Concomitant]
  35. .................. [Concomitant]
  36. ............ [Concomitant]
  37. ................ [Concomitant]
  38. ............. [Concomitant]
  39. ................... [Concomitant]
  40. ................ [Concomitant]
  41. ...................... [Concomitant]
  42. .............. [Concomitant]
  43. LEVAQUIN [Concomitant]
  44. TESSALON [Concomitant]
  45. PREMARIN [Concomitant]
  46. ALBUTEROL [Concomitant]
  47. NORVASC [Concomitant]
  48. FLOVENT [Concomitant]
  49. TORADOL [Concomitant]
  50. CARDIZEM [Concomitant]
  51. VASOTEC [Concomitant]
  52. DOPAMINE HCL [Concomitant]
  53. COZAAR [Concomitant]
  54. HUMIBID [Concomitant]
  55. PERCOCET [Concomitant]
  56. NEURONTIN [Concomitant]
  57. TEGRETOL [Concomitant]
  58. PAXIL [Concomitant]
  59. AMITRIPTLINE HYDROCHLORIDE TAB [Concomitant]
  60. NATRECOR [Concomitant]
  61. ZOLPIDEM [Concomitant]

REACTIONS (32)
  - ACUTE RESPIRATORY DISTRESS SYNDROME [None]
  - ANHEDONIA [None]
  - ATRIAL FIBRILLATION [None]
  - ATRIAL FLUTTER [None]
  - BACK PAIN [None]
  - BRADYCARDIA [None]
  - CARDIAC FAILURE CONGESTIVE [None]
  - CONDITION AGGRAVATED [None]
  - DEPRESSION [None]
  - DIALYSIS [None]
  - DIARRHOEA [None]
  - DILATATION VENTRICULAR [None]
  - ECONOMIC PROBLEM [None]
  - EMOTIONAL DISTRESS [None]
  - HYDRONEPHROSIS [None]
  - INSOMNIA [None]
  - MENTAL DISORDER [None]
  - MULTIPLE INJURIES [None]
  - MYOCARDIAL INFARCTION [None]
  - PAIN [None]
  - PNEUMONIA [None]
  - PULMONARY OEDEMA [None]
  - RENAL FAILURE ACUTE [None]
  - RESPIRATORY FAILURE [None]
  - SINUSITIS [None]
  - TACHYCARDIA [None]
  - THERAPEUTIC AGENT TOXICITY [None]
  - TINNITUS [None]
  - UNEVALUABLE EVENT [None]
  - URINE OUTPUT DECREASED [None]
  - VISION BLURRED [None]
  - VOMITING [None]
